FAERS Safety Report 10236686 (Version 2)
Quarter: 2014Q2

REPORT INFORMATION
  Report Type: Report from Study
  Country: US (occurrence: US)
  Receive Date: 20140613
  Receipt Date: 20140630
  Transmission Date: 20141212
  Serious: Yes (Hospitalization)
  Sender: FDA-Public Use
  Company Number: US-ABBVIE-14P-163-1244142-00

PATIENT
  Age: 70 Year
  Sex: Female
  Weight: 54.93 kg

DRUGS (12)
  1. HUMIRA [Suspect]
     Indication: RHEUMATOID ARTHRITIS
     Dosage: 10-12-YEARS
  2. HUMIRA [Suspect]
     Dosage: 5 YEARS
  3. HUMIRA [Suspect]
     Indication: RHEUMATOID ARTHRITIS
     Dosage: 10 TO 12 YEARS
  4. HUMIRA [Suspect]
     Dosage: 5 YEARS
  5. CELEBREX [Concomitant]
     Indication: RHEUMATOID ARTHRITIS
  6. CELEBREX [Concomitant]
     Indication: OSTEOARTHRITIS
  7. CELEBREX [Concomitant]
     Indication: SPINAL OSTEOARTHRITIS
  8. GABAPENTIN [Concomitant]
     Indication: ARTHRALGIA
  9. LEXAPRO [Concomitant]
     Indication: ANXIOLYTIC THERAPY
  10. UNNAMED SUPPLEMENTS [Concomitant]
     Indication: SUPPLEMENTATION THERAPY
  11. CLIMARA [Concomitant]
     Indication: HORMONE REPLACEMENT THERAPY
  12. NORTRIPTYLINE [Concomitant]
     Indication: MIGRAINE

REACTIONS (11)
  - Thought blocking [Recovered/Resolved]
  - Aphasia [Recovered/Resolved]
  - Migraine with aura [Recovered/Resolved]
  - Injection site pain [Not Recovered/Not Resolved]
  - Incorrect dose administered [Not Recovered/Not Resolved]
  - Injection site pain [Not Recovered/Not Resolved]
  - Dizziness [Recovered/Resolved]
  - Nuclear magnetic resonance imaging abnormal [Unknown]
  - Injection site pain [Recovered/Resolved]
  - Injection site pain [Recovered/Resolved]
  - Injection site extravasation [Not Recovered/Not Resolved]
